FAERS Safety Report 4952715-4 (Version None)
Quarter: 2006Q1

REPORT INFORMATION
  Report Type: 
  Country: None (occurrence: None)
  Receive Date: 20060320
  Receipt Date: 20040823
  Transmission Date: 20060701
  Serious: Yes (Hospitalization, Other)
  Sender: FDA-Public Use
  Company Number: HQWYE226720NOV03

PATIENT
  Age: 62 Year
  Sex: Male
  Weight: 79.9 kg

DRUGS (8)
  1. MYLOTARG [Suspect]
     Indication: ACUTE MYELOID LEUKAEMIA
     Dosage: 17.5 MG 1X PER 1 DAY, INTRAVENOUS
     Route: 042
     Dates: start: 20031014, end: 20031014
  2. MYLOTARG [Suspect]
     Indication: ACUTE MYELOID LEUKAEMIA
     Dosage: 17.5 MG 1X PER 1 DAY, INTRAVENOUS
     Route: 042
     Dates: start: 20031028, end: 20031028
  3. FLUCONAZOLE [Concomitant]
  4. ADVAIR DISKUS 100/50 [Concomitant]
  5. PROTONIX [Concomitant]
  6. ISOSORBIDE (ISOSORBIDE) [Concomitant]
  7. ATENOLOL [Concomitant]
  8. ZOCOR [Concomitant]

REACTIONS (3)
  - FEBRILE NEUTROPENIA [None]
  - LEUKOPENIA [None]
  - PNEUMONIA [None]
